FAERS Safety Report 6420992-9 (Version None)
Quarter: 2009Q4

REPORT INFORMATION
  Report Type: 
  Country: None (occurrence: None)
  Receive Date: 20091030
  Receipt Date: 20091019
  Transmission Date: 20100525
  Serious: Yes (Other)
  Sender: FDA-Public Use
  Company Number: BR-ROCHE-663874

PATIENT
  Sex: Male
  Weight: 65 kg

DRUGS (1)
  1. ROACUTAN [Suspect]
     Indication: ACNE
     Dosage: STRENGTH: 10-20 MG
     Route: 048
     Dates: start: 20091016, end: 20091017

REACTIONS (5)
  - EYE MOVEMENT DISORDER [None]
  - FACIAL PALSY [None]
  - HEAD DEFORMITY [None]
  - HYPOAESTHESIA FACIAL [None]
  - LACRIMATION INCREASED [None]
